FAERS Safety Report 11569488 (Version 1)
Quarter: 2015Q3

REPORT INFORMATION
  Report Type: Spontaneous
  Country: US (occurrence: None)
  Receive Date: 20150928
  Receipt Date: 20150928
  Transmission Date: 20151125
  Serious: Yes (Disabling)
  Sender: FDA-Public Use
  Company Number: None

PATIENT
  Age: 54 Year
  Sex: Female
  Weight: 147.42 kg

DRUGS (5)
  1. FLUCONAZOLE. [Concomitant]
     Active Substance: FLUCONAZOLE
  2. GLYBURIDE/METFORMIN [Concomitant]
     Active Substance: GLYBURIDE\METFORMIN
  3. JANUVIA [Concomitant]
     Active Substance: SITAGLIPTIN PHOSPHATE
  4. VICTOZA [Suspect]
     Active Substance: LIRAGLUTIDE
     Indication: TYPE 2 DIABETES MELLITUS
     Route: 058
     Dates: start: 20150812, end: 20150904
  5. NYSTATIN POWDER [Concomitant]

REACTIONS (8)
  - Dizziness [None]
  - Fungal infection [None]
  - Dehydration [None]
  - Pruritus [None]
  - Blood glucose increased [None]
  - Nausea [None]
  - Drug ineffective [None]
  - Asthenia [None]

NARRATIVE: CASE EVENT DATE: 20150813
